FAERS Safety Report 21846274 (Version 1)
Quarter: 2023Q1

REPORT INFORMATION
  Report Type: Report from Study
  Country: US (occurrence: US)
  Receive Date: 20230111
  Receipt Date: 20230111
  Transmission Date: 20230418
  Serious: No
  Sender: FDA-Public Use
  Company Number: US-ABBVIE-4256407

PATIENT
  Sex: Male

DRUGS (1)
  1. RINVOQ [Suspect]
     Active Substance: UPADACITINIB
     Indication: Colitis ulcerative
     Dosage: 45MG
     Route: 048
     Dates: start: 20221207, end: 20230104

REACTIONS (12)
  - COVID-19 [Recovering/Resolving]
  - Overweight [Unknown]
  - Abnormal faeces [Unknown]
  - Dysphagia [Unknown]
  - Abdominal pain [Unknown]
  - Insomnia [Unknown]
  - Decreased appetite [Unknown]
  - Speech disorder [Recovering/Resolving]
  - Asthenia [Unknown]
  - Diaphragmatic hernia [Unknown]
  - Colitis ulcerative [Unknown]
  - Rectal haemorrhage [Unknown]
